FAERS Safety Report 13997464 (Version 2)
Quarter: 2017Q4

REPORT INFORMATION
  Report Type: Spontaneous
  Country: US (occurrence: US)
  Receive Date: 20170921
  Receipt Date: 20171017
  Transmission Date: 20180321
  Serious: No
  Sender: FDA-Public Use
  Company Number: US-GE HEALTHCARE LIFE SCIENCES-2017CSU002720

PATIENT
  Age: 72 Year
  Sex: Female
  Weight: 74.83 kg

DRUGS (11)
  1. ASPIRIN                            /00002701/ [Concomitant]
     Active Substance: ASPIRIN
  2. CALCIUM [Concomitant]
     Active Substance: CALCIUM
  3. LOSARTAN. [Concomitant]
     Active Substance: LOSARTAN
  4. CHLORTHALIDONE. [Concomitant]
     Active Substance: CHLORTHALIDONE
  5. L-THYROXINE                        /00068001/ [Concomitant]
     Active Substance: LEVOTHYROXINE
  6. MULTIVITAMIN                       /00097801/ [Concomitant]
     Active Substance: VITAMINS
  7. LORATADINE. [Concomitant]
     Active Substance: LORATADINE
  8. OMNIPAQUE [Suspect]
     Active Substance: IOHEXOL
     Indication: ABDOMINAL PAIN
     Dosage: 85 ML, SINGLE
     Route: 042
     Dates: start: 20170815, end: 20170815
  9. AMLODIPINE [Concomitant]
     Active Substance: AMLODIPINE BESYLATE
  10. DOXAZOSIN [Concomitant]
     Active Substance: DOXAZOSIN\DOXAZOSIN MESYLATE
  11. METOPROLOL. [Concomitant]
     Active Substance: METOPROLOL

REACTIONS (2)
  - Swelling [Unknown]
  - Ear discomfort [Unknown]

NARRATIVE: CASE EVENT DATE: 20170816
